FAERS Safety Report 25641327 (Version 1)
Quarter: 2025Q3

REPORT INFORMATION
  Report Type: Spontaneous
  Country: EU (occurrence: EU)
  Receive Date: 20250804
  Receipt Date: 20250804
  Transmission Date: 20251020
  Serious: Yes (Death, Other)
  Sender: BAUSCH AND LOMB
  Company Number: EU-VIANEX-004061

PATIENT
  Age: 72 Year
  Sex: Female

DRUGS (1)
  1. DEXAMETHASONE [Suspect]
     Active Substance: DEXAMETHASONE
     Indication: Product used for unknown indication
     Route: 065

REACTIONS (4)
  - Central nervous system infection [Fatal]
  - Bacteraemia [Fatal]
  - Pneumonia [Fatal]
  - Immunosuppression [Unknown]
